FAERS Safety Report 5537866-8 (Version None)
Quarter: 2007Q4

REPORT INFORMATION
  Report Type: 
  Country: None (occurrence: None)
  Receive Date: 20071207
  Receipt Date: 20071127
  Transmission Date: 20080405
  Serious: Yes (Other)
  Sender: FDA-Public Use
  Company Number: US-PFIZER INC-2007100953

PATIENT
  Sex: Female
  Weight: 70.5 kg

DRUGS (6)
  1. CHANTIX [Suspect]
     Indication: SMOKING CESSATION THERAPY
     Dates: start: 20071119, end: 20071125
  2. EFFEXOR [Concomitant]
  3. KLONOPIN [Concomitant]
  4. INDERAL [Concomitant]
  5. LAMICTAL [Concomitant]
  6. ROZEREM [Concomitant]

REACTIONS (9)
  - ABNORMAL DREAMS [None]
  - APATHY [None]
  - CRYING [None]
  - DEPRESSION [None]
  - FATIGUE [None]
  - INSOMNIA [None]
  - LETHARGY [None]
  - NIGHTMARE [None]
  - PARANOIA [None]
